FAERS Safety Report 10665961 (Version 2)
Quarter: 2014Q4

REPORT INFORMATION
  Report Type: Spontaneous
  Country: RO (occurrence: RO)
  Receive Date: 20141219
  Receipt Date: 20141219
  Transmission Date: 20150529
  Serious: Yes (Other)
  Sender: FDA-Public Use
  Company Number: ALCN2014RO006696

PATIENT
  Age: 73 Year
  Sex: Female

DRUGS (1)
  1. IZBA [Suspect]
     Active Substance: TRAVOPROST
     Indication: OPEN ANGLE GLAUCOMA
     Dosage: 1 GTT, QD
     Route: 047
     Dates: start: 20141120, end: 20141121

REACTIONS (10)
  - Ocular hyperaemia [Recovered/Resolved]
  - Corneal erosion [Recovered/Resolved]
  - Corneal epithelium defect [Recovered/Resolved]
  - Corneal disorder [Recovered/Resolved]
  - Corneal oedema [Recovered/Resolved]
  - Visual impairment [Unknown]
  - Visual acuity reduced [Recovered/Resolved]
  - Eye pain [Recovered/Resolved]
  - Foreign body sensation in eyes [Recovered/Resolved]
  - Eye irritation [Recovering/Resolving]

NARRATIVE: CASE EVENT DATE: 20141120
